FAERS Safety Report 13692946 (Version 3)
Quarter: 2017Q3

REPORT INFORMATION
  Report Type: Report from Study
  Country: DE (occurrence: DE)
  Receive Date: 20170627
  Receipt Date: 20170804
  Transmission Date: 20171127
  Serious: Yes (Hospitalization)
  Sender: FDA-Public Use
  Company Number: DE-ROCHE-1954135

PATIENT
  Age: 73 Year
  Sex: Male
  Weight: 65.1 kg

DRUGS (12)
  1. VENETOCLAX. [Suspect]
     Active Substance: VENETOCLAX
     Dosage: CYCLE 2 WITH 50 MG
     Route: 048
  2. OBINUTUZUMAB. [Suspect]
     Active Substance: OBINUTUZUMAB
     Indication: CHRONIC LYMPHOCYTIC LEUKAEMIA
     Dosage: LAST DOSE OF OBINUTUZUMAB (1000 MG) WAS RECEIVED ON 15/MAR/2017?CYCLE 1: 100 MG DAY 1
     Route: 042
     Dates: start: 20170216, end: 20170511
  3. VENETOCLAX. [Suspect]
     Active Substance: VENETOCLAX
     Dosage: 2 X 100 MG, 120 TABLETS, RECIVED TILL 1/MAY/2017, INTERRUPTED ON 2/MAY/2017 AND DISCONTINUED ON 11/M
     Route: 048
     Dates: start: 20170428, end: 20170511
  4. ACC [Concomitant]
     Active Substance: ACETYLCYSTEINE
     Route: 048
     Dates: start: 201706, end: 201706
  5. IBRUTINIB [Suspect]
     Active Substance: IBRUTINIB
     Dosage: LAST DOSE OF IBRUTINIB (280 MG) WAS RECEIVED ON 1/MAY/2017?INTERRUPTED SINCE 2/MAY/2017.
     Route: 048
     Dates: start: 20170428, end: 20170511
  6. PANTOZOL [Concomitant]
     Active Substance: PANTOPRAZOLE SODIUM
     Route: 048
     Dates: start: 201706
  7. VENETOCLAX. [Suspect]
     Active Substance: VENETOCLAX
     Indication: CHRONIC LYMPHOCYTIC LEUKAEMIA
     Dosage: LAST DOSE OF VENETOCLAX (400 MG) WAS RECEIVED ON 12/APR/2017?CYCLE 1: 20 MG (2 TABLETS. AT 10 MG)
     Route: 048
     Dates: start: 20170309
  8. VENETOCLAX. [Suspect]
     Active Substance: VENETOCLAX
     Dosage: 2 X 100 MG, 16 TABLETS
     Route: 048
  9. SYMBICORT [Concomitant]
     Active Substance: BUDESONIDE\FORMOTEROL FUMARATE DIHYDRATE
     Route: 048
     Dates: start: 20170212
  10. VENETOCLAX. [Suspect]
     Active Substance: VENETOCLAX
     Dosage: 100 MG (8 TABLETS)
     Route: 048
  11. VENETOCLAX. [Suspect]
     Active Substance: VENETOCLAX
     Dosage: 4 X 100 MG, 120 TABLETS
     Route: 048
     Dates: end: 20170418
  12. IBRUTINIB [Suspect]
     Active Substance: IBRUTINIB
     Indication: CHRONIC LYMPHOCYTIC LEUKAEMIA
     Route: 048
     Dates: start: 20170216

REACTIONS (2)
  - Weight decreased [Recovering/Resolving]
  - General physical health deterioration [Recovering/Resolving]

NARRATIVE: CASE EVENT DATE: 20170619
